FAERS Safety Report 13398534 (Version 3)
Quarter: 2017Q2

REPORT INFORMATION
  Report Type: Spontaneous
  Country: FR (occurrence: FR)
  Receive Date: 20170403
  Receipt Date: 20170519
  Transmission Date: 20170830
  Serious: Yes (Death, Hospitalization, Other)
  Sender: FDA-Public Use
  Company Number: FR-009507513-1703FRA014661

PATIENT
  Age: 60 Year
  Sex: Male

DRUGS (1)
  1. KEYTRUDA [Suspect]
     Active Substance: PEMBROLIZUMAB
     Indication: MALIGNANT NEOPLASM PROGRESSION
     Dosage: UNK
     Route: 041
     Dates: start: 20170306

REACTIONS (5)
  - Thrombocytopenia [Fatal]
  - Anaemia [Unknown]
  - Ischaemic stroke [Recovered/Resolved]
  - Dysarthria [Recovered/Resolved]
  - Hepatocellular injury [Unknown]

NARRATIVE: CASE EVENT DATE: 2017
